FAERS Safety Report 9387199 (Version 1)
Quarter: 2013Q3

REPORT INFORMATION
  Report Type: Spontaneous
  Country: GB (occurrence: None)
  Receive Date: 20130702
  Receipt Date: 20130702
  Transmission Date: 20140515
  Serious: Yes (Congenital Anomaly, Other)
  Sender: FDA-Public Use
  Company Number: GER/GER/13/0030253

PATIENT
  Sex: Female
  Weight: 2.6 kg

DRUGS (4)
  1. METOPROLOL (METOPROLOL) [Suspect]
     Indication: PRODUCT USED FOR UNKNOWN INDICATION
     Dosage: 1D
     Route: 064
  2. MIRTAZAPINE (MIRTAZAPINE) [Concomitant]
     Indication: PRODUCT USED FOR UNKNOWN INDICATION
     Dosage: 1 D
     Route: 064
  3. BISOPROLOL [Suspect]
     Indication: PRODUCT USED FOR UNKNOWN INDICATION
     Dosage: 2 IN 1 D
     Route: 064
  4. FOLIC ACID (FOLIC ACID) [Concomitant]

REACTIONS (4)
  - Maternal drugs affecting foetus [None]
  - Congenital hydronephrosis [None]
  - Renal aplasia [None]
  - Low birth weight baby [None]
